FAERS Safety Report 23990956 (Version 1)
Quarter: 2024Q2

REPORT INFORMATION
  Report Type: Spontaneous
  Country: GB (occurrence: GB)
  Receive Date: 20240619
  Receipt Date: 20240619
  Transmission Date: 20240716
  Serious: Yes (Other)
  Sender: FDA-Public Use
  Company Number: GB-BRISTOL-MYERS SQUIBB COMPANY-2024-091522

PATIENT
  Age: 73 Year
  Sex: Female
  Weight: 80.5 kg

DRUGS (3)
  1. OPDIVO [Suspect]
     Active Substance: NIVOLUMAB
     Indication: Epithelioid mesothelioma
     Dates: start: 20220210, end: 20220505
  2. OPDIVO [Suspect]
     Active Substance: NIVOLUMAB
     Dates: start: 20220831, end: 20240529
  3. YERVOY [Suspect]
     Active Substance: IPILIMUMAB
     Indication: Epithelioid mesothelioma

REACTIONS (7)
  - Immune-mediated enterocolitis [Unknown]
  - Diarrhoea [Unknown]
  - Visual impairment [Unknown]
  - Hiatus hernia [Unknown]
  - Umbilical hernia [Unknown]
  - Rib fracture [Recovered/Resolved]
  - Off label use [Unknown]

NARRATIVE: CASE EVENT DATE: 20220501
